FAERS Safety Report 5499590-X (Version None)
Quarter: 2007Q4

REPORT INFORMATION
  Report Type: 
  Country: None (occurrence: None)
  Receive Date: 20071026
  Receipt Date: 20071017
  Transmission Date: 20080405
  Serious: Yes (Death)
  Sender: FDA-Public Use
  Company Number: AU-ROCHE-526286

PATIENT
  Age: 41 Year
  Sex: Male

DRUGS (6)
  1. ROACCUTANE [Suspect]
     Indication: DRUG USE FOR UNKNOWN INDICATION
     Route: 065
  2. COCAINE [Concomitant]
  3. ECSTASY [Concomitant]
  4. CANNABIS [Concomitant]
  5. ANTIDEPRESSANT NOS [Concomitant]
  6. ALCOHOL [Concomitant]

REACTIONS (1)
  - SUDDEN DEATH [None]
